FAERS Safety Report 9513731 (Version 1)
Quarter: 2013Q1

REPORT INFORMATION
  Report Type: Spontaneous
  Country: US (occurrence: None)
  Receive Date: 20130305
  Receipt Date: 20130305
  Transmission Date: 20140127
  Serious: Yes (Other)
  Sender: FDA-Public Use
  Company Number: 163-21880-12092031

PATIENT
  Age: 76 Year
  Sex: Female
  Weight: 79.38 kg

DRUGS (8)
  1. REVLIMID [Suspect]
     Indication: PLASMA CELL MYELOMA
     Dosage: 10 MG, 1 IN 1 D, PO
     Route: 048
     Dates: start: 20100721
  2. LASIX (FUROSEMIDE) (UNKNOWN) [Concomitant]
  3. ALIGN (BIFIDOBACTERIUM INFANTIS) (UNKNOWN) [Concomitant]
  4. CALCIUM +D (OS-CAL) (UNKNOWN) [Concomitant]
  5. CITRUCEL (METHYLCELLULOSE) (UNKNOWN) [Concomitant]
  6. COUMADIN (WARFARIN SODIUM) (UNKNOWN) [Concomitant]
  7. POTASSIUM (POTASSIUM) (UNKNOWN) [Concomitant]
  8. SYNTHROID (LEVOTHYROXINE SODIUM) (UNKNOWN) [Concomitant]

REACTIONS (2)
  - Lipoma [None]
  - Local swelling [None]
